FAERS Safety Report 5062410-1 (Version None)
Quarter: 2006Q3

REPORT INFORMATION
  Report Type: 
  Country: None (occurrence: None)
  Receive Date: 20060703
  Receipt Date: 20051229
  Transmission Date: 20061208
  Serious: No
  Sender: FDA-Public Use
  Company Number: 2005S1012226

PATIENT
  Age: 70 Year
  Sex: Female
  Weight: 103.4201 kg

DRUGS (6)
  1. CLOZAPINE [Suspect]
     Indication: SCHIZOPHRENIA
     Dosage: SEE IMAGE
     Route: 048
     Dates: start: 20051115
  2. VENLAFAXINE HCL [Concomitant]
  3. HYDROCHLORIDE [Concomitant]
  4. LITHIUM CARBONATE [Concomitant]
  5. VALPROATE SODIUM [Concomitant]
  6. RISPERIDONE [Concomitant]

REACTIONS (1)
  - GRANULOCYTOPENIA [None]
